FAERS Safety Report 25238146 (Version 1)
Quarter: 2025Q2

REPORT INFORMATION
  Report Type: Spontaneous
  Country: US (occurrence: US)
  Receive Date: 20250425
  Receipt Date: 20250425
  Transmission Date: 20250716
  Serious: No
  Sender: MERCK SHARP & DOHME LLC
  Company Number: US-009507513-2273517

PATIENT
  Age: 79 Year
  Sex: Female

DRUGS (1)
  1. BELSOMRA [Suspect]
     Active Substance: SUVOREXANT
     Indication: Insomnia
     Dosage: 5 MG, QD  (1 TABLET NIGHTLY)
     Route: 048
     Dates: start: 20250327

REACTIONS (3)
  - Drug ineffective [Unknown]
  - Therapeutic product effect delayed [Unknown]
  - Underdose [Unknown]

NARRATIVE: CASE EVENT DATE: 20250327
